FAERS Safety Report 10909318 (Version 1)
Quarter: 2015Q1

REPORT INFORMATION
  Report Type: Spontaneous
  Country: US (occurrence: US)
  Receive Date: 20150312
  Receipt Date: 20150312
  Transmission Date: 20150721
  Serious: Yes (Other)
  Sender: FDA-Public Use
  Company Number: US-SA-2014SA039883

PATIENT
  Sex: Female

DRUGS (1)
  1. NASACORT AQ [Suspect]
     Active Substance: TRIAMCINOLONE ACETONIDE
     Route: 065

REACTIONS (2)
  - Cataract [Unknown]
  - Eye pain [Unknown]

NARRATIVE: CASE EVENT DATE: 2012
